FAERS Safety Report 6785987-4 (Version None)
Quarter: 2010Q2

REPORT INFORMATION
  Report Type: 
  Country: None (occurrence: None)
  Receive Date: 20100623
  Receipt Date: 20100611
  Transmission Date: 20101027
  Serious: Yes (Hospitalization)
  Sender: FDA-Public Use
  Company Number: DE-BAYER-201028417GPV

PATIENT
  Age: 58 Year
  Sex: Male

DRUGS (10)
  1. SORAFENIB [Suspect]
     Indication: RENAL CELL CARCINOMA
     Route: 048
     Dates: start: 20100312, end: 20100610
  2. ALLOPURINOL [Concomitant]
     Dosage: TOTAL DAILY DOSE: 300 MG
     Dates: start: 20100201
  3. PANTOPRAZOLE [Concomitant]
     Dosage: TOTAL DAILY DOSE: 40 MG
     Dates: start: 20000101
  4. SELOKEN PLUS [Concomitant]
     Dates: start: 20100518, end: 20100611
  5. ASPIRIN [Concomitant]
     Dosage: TOTAL DAILY DOSE: 100 MG
     Dates: start: 19940101
  6. AMLODIPINE [Concomitant]
     Dosage: TOTAL DAILY DOSE: 10 MG
     Dates: start: 20100315
  7. THYREX [Concomitant]
     Dosage: TOTAL DAILY DOSE: 200 MG
     Dates: start: 20100514
  8. RASILEZ [Concomitant]
     Dosage: TOTAL DAILY DOSE: 300 MG
     Dates: start: 20100414
  9. SELOKEN [Concomitant]
     Dates: start: 20100518
  10. ROCALTROL [Concomitant]
     Dosage: TOTAL DAILY DOSE: 0.5 MG
     Dates: start: 20100610

REACTIONS (1)
  - GOUT [None]
